FAERS Safety Report 17741422 (Version 1)
Quarter: 2020Q2

REPORT INFORMATION
  Report Type: Spontaneous
  Country: IT (occurrence: IT)
  Receive Date: 20200504
  Receipt Date: 20200504
  Transmission Date: 20200714
  Serious: Yes (Hospitalization, Other)
  Sender: FDA-Public Use
  Company Number: IT-MYLANLABS-2020M1042727

PATIENT
  Age: 50 Year
  Sex: Male

DRUGS (5)
  1. LAMIVUDINE. [Suspect]
     Active Substance: LAMIVUDINE
     Indication: ANTIRETROVIRAL THERAPY
     Dosage: UNK
  2. INDINAVIR [Suspect]
     Active Substance: INDINAVIR
     Indication: ANTIRETROVIRAL THERAPY
     Dosage: UNK
  3. STAVUDINE. [Suspect]
     Active Substance: STAVUDINE
     Indication: ANTIRETROVIRAL THERAPY
     Dosage: UNK
  4. EFAVIRENZ. [Suspect]
     Active Substance: EFAVIRENZ
     Indication: ANTIRETROVIRAL THERAPY
     Dosage: UNK
  5. TENOFOVIR DISOPROXIL [Suspect]
     Active Substance: TENOFOVIR DISOPROXIL
     Indication: ANTIRETROVIRAL THERAPY
     Dosage: UNK

REACTIONS (23)
  - Hypertension [Recovered/Resolved]
  - Confusional state [Recovered/Resolved]
  - Blood triglycerides increased [Unknown]
  - Blood cholesterol increased [Unknown]
  - Loss of consciousness [Recovered/Resolved]
  - Vasogenic cerebral oedema [Recovered/Resolved]
  - Waist circumference increased [Unknown]
  - Asthenia [Recovered/Resolved]
  - Left atrial hypertrophy [Unknown]
  - Coma [Recovered/Resolved]
  - Posterior reversible encephalopathy syndrome [Recovered/Resolved]
  - Body fat disorder [Unknown]
  - Papilloedema [Recovered/Resolved]
  - Agitation [Recovered/Resolved]
  - Pyrexia [Recovered/Resolved]
  - Facial paralysis [Recovered/Resolved]
  - Hypertensive crisis [Recovered/Resolved]
  - Hydrocephalus [Recovered/Resolved]
  - Hyperreflexia [Recovered/Resolved]
  - Extensor plantar response [Recovered/Resolved]
  - Left ventricular hypertrophy [Unknown]
  - Tachycardia [Unknown]
  - Lipodystrophy acquired [Unknown]
